FAERS Safety Report 4591803-1 (Version None)
Quarter: 2005Q1

REPORT INFORMATION
  Report Type: 
  Country: None (occurrence: None)
  Receive Date: 20050125
  Receipt Date: 20040817
  Transmission Date: 20050727
  Serious: No
  Sender: FDA-Public Use
  Company Number: USA040875764

PATIENT
  Age: 46 Year
  Sex: Female

DRUGS (5)
  1. FORTEO [Suspect]
     Indication: OSTEOPOROSIS
     Dosage: 20 UG/1 DAY
     Dates: start: 20040813, end: 20040815
  2. HORMONE REPLACEMENT THERAPY [Concomitant]
  3. GLUCOPHAGE [Concomitant]
  4. AMBIEN [Concomitant]
  5. ZOMIG [Concomitant]

REACTIONS (8)
  - DIZZINESS [None]
  - HEADACHE [None]
  - HYPOVENTILATION [None]
  - NAUSEA [None]
  - PULSE ABNORMAL [None]
  - PULSE PRESSURE DECREASED [None]
  - RESPIRATORY RATE INCREASED [None]
  - VISION BLURRED [None]
